FAERS Safety Report 7859954-3 (Version None)
Quarter: 2011Q4

REPORT INFORMATION
  Report Type: 
  Country: None (occurrence: None)
  Receive Date: 20111026
  Receipt Date: 20111026
  Transmission Date: 20120403
  Serious: Yes (Life-Threatening, Hospitalization)
  Sender: FDA-Public Use
  Company Number: None

PATIENT
  Age: 68 Year
  Sex: Male
  Weight: 85.5 kg

DRUGS (1)
  1. ENOXAPARIN [Suspect]
     Indication: SURGERY
     Dosage: ML SQ
     Route: 058
     Dates: start: 20110926, end: 20111010

REACTIONS (3)
  - THROMBOCYTOPENIA [None]
  - ASTHENIA [None]
  - DYSPNOEA [None]
